FAERS Safety Report 5051917-9 (Version None)
Quarter: 2006Q3

REPORT INFORMATION
  Report Type: 
  Country: None (occurrence: None)
  Receive Date: 20060713
  Receipt Date: 20060713
  Transmission Date: 20061208
  Serious: No
  Sender: FDA-Public Use
  Company Number: None

PATIENT
  Sex: Male

DRUGS (3)
  1. LORATADINE [Suspect]
     Indication: ALLERGY TO ANIMAL
     Dosage: 2TSP PO
     Route: 048
     Dates: start: 20060707
  2. LORATADINE [Suspect]
     Indication: ECZEMA
     Dosage: 2TSP PO
     Route: 048
     Dates: start: 20060707
  3. LORATADINE [Suspect]
     Indication: FOOD ALLERGY
     Dosage: 2TSP PO
     Route: 048
     Dates: start: 20060707

REACTIONS (1)
  - HEADACHE [None]
